FAERS Safety Report 4592666-0 (Version None)
Quarter: 2005Q1

REPORT INFORMATION
  Report Type: 
  Country: None (occurrence: None)
  Receive Date: 20050222
  Receipt Date: 20050210
  Transmission Date: 20050727
  Serious: Yes (Death, Other)
  Sender: FDA-Public Use
  Company Number: 2005028555

PATIENT
  Sex: Female

DRUGS (1)
  1. FELDENE [Suspect]
     Indication: ARTHRITIS
     Dosage: 20 MG, ORAL
     Route: 048

REACTIONS (1)
  - INFARCTION [None]
